FAERS Safety Report 5909142-2 (Version None)
Quarter: 2008Q4

REPORT INFORMATION
  Report Type: 
  Country: None (occurrence: None)
  Receive Date: 20081006
  Receipt Date: 20080925
  Transmission Date: 20090506
  Serious: Yes (Death, Life-Threatening)
  Sender: FDA-Public Use
  Company Number: JP-NOVOPROD-269605

PATIENT
  Age: 77 Year
  Sex: Male
  Weight: 50 kg

DRUGS (13)
  1. NOVOSEVEN [Suspect]
     Indication: HAEMORRHAGE
     Dosage: 38.4 MG, QD
     Route: 042
     Dates: start: 20071117, end: 20071119
  2. NOVOSEVEN [Suspect]
     Dosage: 19.2 MG, UNK
     Route: 042
     Dates: start: 20071121, end: 20071122
  3. PREDNISOLONE [Concomitant]
     Dosage: 60 MG, QD
     Route: 042
     Dates: start: 20071117, end: 20071122
  4. FUTHAN [Concomitant]
     Route: 042
  5. FUROSEMIDE [Concomitant]
     Route: 042
  6. MEROPEN                            /01250502/ [Concomitant]
     Route: 042
  7. CHICHINA [Concomitant]
     Route: 042
  8. SOLOZORIN [Concomitant]
     Route: 042
  9. ALBUMIN                            /01102501/ [Concomitant]
     Route: 042
  10. KAKODIN [Concomitant]
     Route: 042
  11. FRESH FROZEN PLASMA [Concomitant]
     Route: 042
  12. RED BLOOD CELLS [Concomitant]
     Route: 042
  13. VASOLAN                            /00014302/ [Concomitant]
     Route: 042

REACTIONS (1)
  - MULTI-ORGAN FAILURE [None]
